FAERS Safety Report 18762601 (Version 1)
Quarter: 2021Q1

REPORT INFORMATION
  Report Type: Spontaneous
  Country: US (occurrence: US)
  Receive Date: 20210119
  Receipt Date: 20210119
  Transmission Date: 20210419
  Serious: Yes (Other)
  Sender: FDA-Public Use
  Company Number: None

PATIENT

DRUGS (1)
  1. OLAPARIB. [Suspect]
     Active Substance: OLAPARIB

REACTIONS (2)
  - Anaemia [None]
  - Pancytopenia [None]

NARRATIVE: CASE EVENT DATE: 20200714
